FAERS Safety Report 7078611-7 (Version None)
Quarter: 2010Q4

REPORT INFORMATION
  Report Type: 
  Country: None (occurrence: None)
  Receive Date: 20101102
  Receipt Date: 20101022
  Transmission Date: 20110411
  Serious: Yes (Hospitalization, Other)
  Sender: FDA-Public Use
  Company Number: US-ELI_LILLY_AND_COMPANY-US200808001353

PATIENT
  Sex: Male
  Weight: 81.179 kg

DRUGS (18)
  1. BYETTA [Suspect]
     Indication: TYPE 2 DIABETES MELLITUS
     Dosage: 10 UG, 2/D
     Route: 058
     Dates: start: 20080601
  2. BYETTA [Suspect]
     Dosage: 10 UG, DAILY (1/D)
     Route: 058
     Dates: start: 20080801
  3. GLIMEPIRIDE [Concomitant]
     Indication: TYPE 2 DIABETES MELLITUS
     Dosage: UNK, EACH MORNING
     Route: 048
  4. GLIMEPIRIDE [Concomitant]
     Dosage: UNK, EACH EVENING
     Route: 048
  5. METFORMIN [Concomitant]
  6. GLYBURIDE [Concomitant]
  7. DIGOXIN [Concomitant]
     Dosage: UNK, DAILY (1/D)
     Route: 048
  8. CARDURA [Concomitant]
     Dosage: UNK, DAILY (1/D)
     Route: 048
  9. LASIX [Concomitant]
     Dosage: UNK, 2/D
     Route: 048
  10. SPIRONOLACTONE [Concomitant]
     Dosage: UNK, DAILY (1/D)
     Route: 048
  11. PROCARDIA [Concomitant]
     Dosage: 30 MG, 2/D
     Route: 048
  12. PRAVASTATIN [Concomitant]
     Indication: BLOOD CHOLESTEROL INCREASED
     Dosage: 10 MG, DAILY (1/D)
     Route: 048
  13. PRAVASTATIN [Concomitant]
     Dosage: 80 MG, DAILY (1/D)
     Route: 048
  14. CO-Q10 [Concomitant]
     Dosage: 400 UNK, DAILY (1/D)
  15. SOTALOL [Concomitant]
     Dosage: UNK, DAILY (1/D)
     Route: 048
  16. VITAMIN B-12 [Concomitant]
  17. VITAMIN E /001105/ [Concomitant]
  18. WARFARIN [Concomitant]
     Route: 048

REACTIONS (19)
  - ATRIAL FIBRILLATION [None]
  - BLOOD CHOLESTEROL INCREASED [None]
  - BLOOD GLUCOSE INCREASED [None]
  - CARDIAC FAILURE CONGESTIVE [None]
  - CHEST PAIN [None]
  - DECREASED APPETITE [None]
  - DEPRESSION [None]
  - DRUG DISPENSING ERROR [None]
  - DYSPNOEA [None]
  - FATIGUE [None]
  - FLUID RETENTION [None]
  - GLYCOSYLATED HAEMOGLOBIN INCREASED [None]
  - HEART RATE INCREASED [None]
  - NAUSEA [None]
  - STRESS [None]
  - SWELLING [None]
  - VENTRICULAR TACHYCARDIA [None]
  - VOMITING [None]
  - WEIGHT DECREASED [None]
